FAERS Safety Report 4844943-3 (Version None)
Quarter: 2005Q4

REPORT INFORMATION
  Report Type: 
  Country: None (occurrence: None)
  Receive Date: 20051205
  Receipt Date: 20040722
  Transmission Date: 20060501
  Serious: Yes (Hospitalization)
  Sender: FDA-Public Use
  Company Number: DE-BRISTOL-MYERS SQUIBB COMPANY-12652228

PATIENT
  Age: 41 Year
  Sex: Female

DRUGS (5)
  1. ABILIFY [Suspect]
     Indication: SCHIZOPHRENIA
     Route: 048
     Dates: start: 20040707, end: 20040714
  2. CIPRAMIL [Concomitant]
     Dosage: 10 MG, THEN 20 MG SINCE 24-JUN-04;25-JUN-04, 30 MG
     Route: 048
  3. RISPERDAL [Concomitant]
     Dosage: REDUCED ON 16-JUL-04
     Route: 048
     Dates: end: 20040718
  4. TAVOR [Concomitant]
     Dosage: 0.5 MG TID, SINCE 24-JUN-04 0.5 MG QID 07-JUN-04
     Route: 048
  5. DIOVAN HCT [Concomitant]
     Dosage: VALSARTAN 80 MG/HCTZ 12.5 MG 17-JUN-04
     Dates: start: 20040617

REACTIONS (5)
  - BLOOD CREATINE PHOSPHOKINASE INCREASED [None]
  - CONVULSION [None]
  - HYPONATRAEMIA [None]
  - LOSS OF CONSCIOUSNESS [None]
  - VOMITING [None]
